FAERS Safety Report 9579883 (Version 1)
Quarter: 2013Q3

REPORT INFORMATION
  Report Type: Spontaneous
  Country: US (occurrence: None)
  Receive Date: 20130916
  Receipt Date: 20130916
  Transmission Date: 20140515
  Serious: Yes (Other)
  Sender: FDA-Public Use
  Company Number: JPI-P-026370

PATIENT
  Age: 38 Year
  Sex: Male
  Weight: 70.31 kg

DRUGS (7)
  1. XYREM (500 MILLIGRAM/MILLILITERS, SOLUTION) (SODIUM OXYBATE) [Suspect]
     Indication: NARCOLEPSY
     Dosage: (4 GM FIRST DOSE/3 GM SECOND DOSE), ORAL
     Dates: start: 20050205
  2. VALACYCLOVIR HYDROCHLORIDE [Concomitant]
  3. FEXOFENADINE [Concomitant]
  4. FLUTICASONE PROPIONATE [Concomitant]
  5. MOMETASONE FUROATE [Concomitant]
  6. ALBUTEROL [Concomitant]
  7. DIPHENHYDRAMINE [Concomitant]

REACTIONS (1)
  - Blood pressure increased [None]
